FAERS Safety Report 10015867 (Version 5)
Quarter: 2015Q4

REPORT INFORMATION
  Report Type: Spontaneous
  Country: US (occurrence: US)
  Receive Date: 20140317
  Receipt Date: 20151013
  Transmission Date: 20160304
  Serious: Yes (Hospitalization, Other)
  Sender: FDA-Public Use
  Company Number: US-009507513-1403USA004508

PATIENT
  Sex: Female

DRUGS (4)
  1. FOSAMAX [Suspect]
     Active Substance: ALENDRONATE SODIUM
     Indication: OSTEOPOROSIS
     Dosage: 70 MG, QW
     Route: 048
     Dates: start: 199909, end: 200302
  2. FOSAMAX [Suspect]
     Active Substance: ALENDRONATE SODIUM
     Dosage: 70 MG, QW
     Route: 048
     Dates: start: 200410, end: 200511
  3. FORTEO [Suspect]
     Active Substance: TERIPARATIDE
     Indication: OSTEOPOROSIS
     Dosage: 750 MCG, 3 ML INJECTION
     Dates: start: 200303, end: 200409
  4. ACTONEL [Suspect]
     Active Substance: RISEDRONATE SODIUM
     Indication: OSTEOPOROSIS
     Dosage: 30 MG, QW
     Route: 048
     Dates: start: 200512, end: 200612

REACTIONS (8)
  - Knee arthroplasty [Unknown]
  - Fall [Unknown]
  - Femur fracture [Unknown]
  - Blood cholesterol increased [Not Recovered/Not Resolved]
  - Intramedullary rod insertion [Unknown]
  - Vitamin D deficiency [Unknown]
  - Tooth extraction [Unknown]
  - Femur fracture [Unknown]

NARRATIVE: CASE EVENT DATE: 2000
